FAERS Safety Report 5123892-X (Version None)
Quarter: 2006Q3

REPORT INFORMATION
  Report Type: 
  Country: None (occurrence: None)
  Receive Date: 20060811
  Receipt Date: 20060605
  Transmission Date: 20061208
  Serious: No
  Sender: FDA-Public Use
  Company Number: 200615676US

PATIENT
  Age: 45 Year
  Sex: Male

DRUGS (3)
  1. APIDRA [Suspect]
  2. NOVOLOG [Concomitant]
  3. PREDNISONE TAB [Concomitant]

REACTIONS (1)
  - WEIGHT INCREASED [None]
